FAERS Safety Report 7361196-5 (Version None)
Quarter: 2011Q1

REPORT INFORMATION
  Report Type: 
  Country: None (occurrence: None)
  Receive Date: 20110318
  Receipt Date: 20110304
  Transmission Date: 20110831
  Serious: Yes (Other)
  Sender: FDA-Public Use
  Company Number: PHHY2010US77029

PATIENT
  Sex: Male

DRUGS (2)
  1. GLEEVEC [Suspect]
     Indication: MALIGNANT SOFT TISSUE NEOPLASM
     Dosage: 400 MG DAILY
     Route: 048
     Dates: start: 20100928
  2. GLEEVEC [Suspect]
     Dosage: 400 MG, BID
     Route: 048

REACTIONS (8)
  - LIVER DISORDER [None]
  - NEOPLASM MALIGNANT [None]
  - NAUSEA [None]
  - FLUID RETENTION [None]
  - DIARRHOEA [None]
  - MUSCLE SPASMS [None]
  - ANAEMIA [None]
  - FLATULENCE [None]
